FAERS Safety Report 16545864 (Version 1)
Quarter: 2019Q3

REPORT INFORMATION
  Report Type: Spontaneous
  Country: US (occurrence: US)
  Receive Date: 20190709
  Receipt Date: 20190709
  Transmission Date: 20191004
  Serious: Yes (Other)
  Sender: FDA-Public Use
  Company Number: US-BAYER-2019-122970

PATIENT
  Age: 39 Year
  Sex: Female
  Weight: 108.84 kg

DRUGS (2)
  1. BAYER ASPIRIN [Suspect]
     Active Substance: ASPIRIN
     Indication: INTENTIONAL SELF-INJURY
     Dosage: 20 DF, ONCE
     Route: 048
     Dates: start: 201906, end: 201906
  2. BAYER ASPIRIN [Suspect]
     Active Substance: ASPIRIN
     Indication: INTENTIONAL SELF-INJURY
     Dosage: 25 OR 30 DF, ONCE
     Route: 048
     Dates: start: 20190624, end: 20190624

REACTIONS (11)
  - Dyspnoea [None]
  - Intentional overdose [Unknown]
  - Tinnitus [Recovered/Resolved]
  - Pallor [None]
  - Intentional overdose [Unknown]
  - Intentional self-injury [None]
  - Somnolence [None]
  - Dizziness [None]
  - Brow ptosis [None]
  - Intentional self-injury [None]
  - Abdominal pain upper [None]

NARRATIVE: CASE EVENT DATE: 201906
